FAERS Safety Report 6545183-2 (Version None)
Quarter: 2010Q1

REPORT INFORMATION
  Report Type: 
  Country: None (occurrence: None)
  Receive Date: 20100121
  Receipt Date: 20090324
  Transmission Date: 20100710
  Serious: No
  Sender: FDA-Public Use
  Company Number: US-KINGPHARMUSA00001-K200900341

PATIENT
  Sex: Female
  Weight: 53.061 kg

DRUGS (1)
  1. EPIPEN [Suspect]
     Indication: DRUG HYPERSENSITIVITY
     Dosage: 0.3 MG, SINGLE, INTRAMUSCULAR
     Dates: start: 20090323, end: 20090323

REACTIONS (2)
  - ACCIDENTAL EXPOSURE [None]
  - NERVOUSNESS [None]
